FAERS Safety Report 21473588 (Version 2)
Quarter: 2022Q4

REPORT INFORMATION
  Report Type: Report from Study
  Country: US (occurrence: US)
  Receive Date: 20221018
  Receipt Date: 20221025
  Transmission Date: 20230113
  Serious: Yes (Hospitalization, Other)
  Sender: FDA-Public Use
  Company Number: US-PFIZER INC-PV202200083904

PATIENT
  Age: 79 Year
  Sex: Male

DRUGS (1)
  1. VYNDAMAX [Suspect]
     Active Substance: TAFAMIDIS
     Dosage: UNK

REACTIONS (4)
  - Ulcer haemorrhage [Unknown]
  - Atrial fibrillation [Unknown]
  - Cardiac failure [Unknown]
  - Dyspnoea [Unknown]
